FAERS Safety Report 15687232 (Version 1)
Quarter: 2018Q4

REPORT INFORMATION
  Report Type: Spontaneous
  Country: CA (occurrence: CA)
  Receive Date: 20181204
  Receipt Date: 20181204
  Transmission Date: 20190205
  Serious: Yes (Other)
  Sender: FDA-Public Use
  Company Number: CA-CELLTRION INC.-2018CA021958

PATIENT

DRUGS (8)
  1. IMURAN [Concomitant]
     Active Substance: AZATHIOPRINE
     Dosage: UNK
     Dates: start: 201703
  2. SYNTHROID [Concomitant]
     Active Substance: LEVOTHYROXINE SODIUM
     Dosage: UNK
  3. INFLECTRA [Suspect]
     Active Substance: INFLIXIMAB-DYYB
     Dosage: 300 MG, CYCLIC (0, 2, 6     WEEKS, THEN EVERY 8 WEEKS )
     Route: 042
     Dates: start: 20180802
  4. CITALOPRAM [Concomitant]
     Active Substance: CITALOPRAM HYDROBROMIDE
     Dosage: UNK
  5. INFLECTRA [Suspect]
     Active Substance: INFLIXIMAB-DYYB
     Indication: COLITIS ULCERATIVE
     Dosage: 300 MG, CYCLIC (0, 2, 6     WEEKS, THEN EVERY 8 WEEKS )
     Route: 042
     Dates: start: 20180105
  6. INFLECTRA [Suspect]
     Active Substance: INFLIXIMAB-DYYB
     Dosage: 300 MG, (0, 2, 6 WEEKS, THEN EVERY 8 WEEKS);
     Route: 042
     Dates: start: 20181120
  7. ALESSE 28 [Concomitant]
     Active Substance: ETHINYL ESTRADIOL\LEVONORGESTREL
     Dosage: UNK
  8. INFLECTRA [Suspect]
     Active Substance: INFLIXIMAB-DYYB
     Dosage: 300 MG, CYCLIC (0, 2, 6     WEEKS, THEN EVERY 8 WEEKS )
     Route: 042
     Dates: start: 20180927

REACTIONS (3)
  - Secretion discharge [Unknown]
  - Fatigue [Unknown]
  - Pilonidal cyst [Unknown]

NARRATIVE: CASE EVENT DATE: 20180802
